FAERS Safety Report 7324688-0 (Version None)
Quarter: 2011Q1

REPORT INFORMATION
  Report Type: 
  Country: None (occurrence: None)
  Receive Date: 20110301
  Receipt Date: 20110221
  Transmission Date: 20110831
  Serious: Yes (Other)
  Sender: FDA-Public Use
  Company Number: HR-TEVA-268245ISR

PATIENT
  Age: 65 Year
  Sex: Female

DRUGS (3)
  1. AMIODARONE HYDROCHLORIDE [Concomitant]
     Indication: ARRHYTHMIA
     Route: 048
     Dates: start: 20100131
  2. WARFARIN (MARTEFARIN) [Concomitant]
     Indication: HYPERTENSION
     Route: 048
     Dates: start: 20100131
  3. SIMVASTATIN [Suspect]
     Indication: DYSLIPIDAEMIA
     Route: 048
     Dates: start: 20100130

REACTIONS (3)
  - JOINT SWELLING [None]
  - BURNING SENSATION [None]
  - PURPURA [None]
